FAERS Safety Report 9263383 (Version 1)
Quarter: 2013Q2

REPORT INFORMATION
  Report Type: Spontaneous
  Country: US (occurrence: None)
  Receive Date: 20130429
  Receipt Date: 20130429
  Transmission Date: 20140414
  Serious: Yes (Hospitalization, Disabling)
  Sender: FDA-Public Use
  Company Number: None

PATIENT
  Sex: Female
  Weight: 57.61 kg

DRUGS (1)
  1. PREDNISONE [Suspect]
     Indication: EMPHYSEMA
     Dosage: 5 MG 1 DAILY
     Dates: start: 200101, end: 20130415

REACTIONS (4)
  - Arthralgia [None]
  - Back pain [None]
  - Groin pain [None]
  - Musculoskeletal pain [None]
